FAERS Safety Report 5001842-4 (Version None)
Quarter: 2006Q2

REPORT INFORMATION
  Report Type: 
  Country: None (occurrence: None)
  Receive Date: 20060515
  Receipt Date: 20060406
  Transmission Date: 20061013
  Serious: Yes (Hospitalization)
  Sender: FDA-Public Use
  Company Number: JP-JPN-A200601169

PATIENT
  Age: 84 Year
  Sex: Female

DRUGS (3)
  1. VALTREX [Suspect]
     Indication: HERPES ZOSTER
     Dosage: 1000MG PER DAY
     Route: 048
     Dates: start: 20060328, end: 20060330
  2. CYANOCOBALAMIN [Concomitant]
     Dosage: 1U THREE TIMES PER DAY
     Route: 048
  3. LOBU [Concomitant]
     Dosage: 1U PER DAY
     Route: 048

REACTIONS (2)
  - ASTHENIA [None]
  - DYSARTHRIA [None]
